FAERS Safety Report 13794830 (Version 3)
Quarter: 2018Q2

REPORT INFORMATION
  Report Type: Spontaneous
  Country: DE (occurrence: DE)
  Receive Date: 20170726
  Receipt Date: 20180411
  Transmission Date: 20180711
  Serious: Yes (Disabling, Congenital Anomaly, Other)
  Sender: FDA-Public Use
  Company Number: DE-AMGEN-DEUSP2017046403

PATIENT
  Age: 71 Year
  Sex: Female
  Weight: 50 kg

DRUGS (1)
  1. PROLIA [Suspect]
     Active Substance: DENOSUMAB
     Indication: PRODUCT USED FOR UNKNOWN INDICATION
     Dosage: UNK
     Route: 065
     Dates: start: 20160623

REACTIONS (10)
  - Weight decreased [Unknown]
  - Anxiety [Recovered/Resolved]
  - Hyperhidrosis [Recovered/Resolved]
  - Angina pectoris [Unknown]
  - Depression [Recovering/Resolving]
  - Herpes zoster [Recovering/Resolving]
  - Cough [Recovered/Resolved]
  - Visual impairment [Unknown]
  - Influenza like illness [Recovered/Resolved]
  - Eczema [Unknown]

NARRATIVE: CASE EVENT DATE: 2016
